FAERS Safety Report 26081850 (Version 1)
Quarter: 2025Q4

REPORT INFORMATION
  Report Type: Spontaneous
  Country: US (occurrence: US)
  Receive Date: 20251124
  Receipt Date: 20251124
  Transmission Date: 20260117
  Serious: Yes (Other)
  Sender: BRISTOL-MYERS SQUIBB COMPANY
  Company Number: US-BRISTOL-MYERS SQUIBB COMPANY-2025-155427

PATIENT
  Age: 72 Year
  Sex: Male

DRUGS (30)
  1. CAMZYOS [Suspect]
     Active Substance: MAVACAMTEN
     Indication: Hypertrophic cardiomyopathy
     Route: 048
     Dates: start: 20240920
  2. EZETIMIBE [Concomitant]
     Active Substance: EZETIMIBE
     Indication: Product used for unknown indication
  3. ATORVASTATIN [Concomitant]
     Active Substance: ATORVASTATIN
     Indication: Product used for unknown indication
  4. VERAPAMIL [Concomitant]
     Active Substance: VERAPAMIL HYDROCHLORIDE
     Indication: Product used for unknown indication
     Dosage: PT HAS BEEN ON IT FOR YEARS
  5. ELIQUIS [Concomitant]
     Active Substance: APIXABAN
     Indication: Product used for unknown indication
  6. GABAPENTIN [Concomitant]
     Active Substance: GABAPENTIN
     Indication: Product used for unknown indication
  7. CIALIS [Concomitant]
     Active Substance: TADALAFIL
     Indication: Product used for unknown indication
  8. FUROSEMIDE [Concomitant]
     Active Substance: FUROSEMIDE
     Indication: Product used for unknown indication
  9. TYLENOL [Concomitant]
     Active Substance: ACETAMINOPHEN
     Indication: Product used for unknown indication
  10. ACRIVASTINE [Concomitant]
     Active Substance: ACRIVASTINE
     Indication: Product used for unknown indication
  11. LORAZEPAM [Concomitant]
     Active Substance: LORAZEPAM
     Indication: Product used for unknown indication
  12. HYDROCODONE BITARTRATE AND ACETAMINOPHEN [Concomitant]
     Active Substance: ACETAMINOPHEN\HYDROCODONE BITARTRATE
     Indication: Product used for unknown indication
     Dosage: PRN
  13. ACETAMINOPHEN\OXYCODONE HYDROCHLORIDE\OXYCODONE TEREPHTHALATE [Concomitant]
     Active Substance: ACETAMINOPHEN\OXYCODONE HYDROCHLORIDE\OXYCODONE TEREPHTHALATE
     Indication: Product used for unknown indication
     Dosage: PRN
  14. COLACE [Concomitant]
     Active Substance: DOCUSATE SODIUM
     Indication: Product used for unknown indication
  15. SENNA LEAF [Concomitant]
     Active Substance: SENNA LEAF
     Indication: Product used for unknown indication
  16. CENTRUM [ASCORBIC ACID;BETACAROTENE;BIOTIN;CALCIUM;CHLORINE;CHROMIUM;C [Concomitant]
     Indication: Product used for unknown indication
  17. TOLNAFTATE [Concomitant]
     Active Substance: TOLNAFTATE
     Indication: Product used for unknown indication
  18. Cortisone itch [Concomitant]
     Indication: Product used for unknown indication
     Dosage: ITCH CREAM
  19. FUNGI NAIL [CLOTRIMAZOLE] [Concomitant]
     Indication: Product used for unknown indication
  20. FOLATE SODIUM [Concomitant]
     Active Substance: FOLATE SODIUM
     Indication: Product used for unknown indication
  21. BENZONATATE [Concomitant]
     Active Substance: BENZONATATE
     Indication: Product used for unknown indication
     Dosage: PRN
  22. HYDROCORTISONE [Concomitant]
     Active Substance: HYDROCORTISONE
     Indication: Product used for unknown indication
  23. COVID-19 VACCINE [Concomitant]
     Indication: COVID-19 immunisation
  24. FOLIC ACID [Concomitant]
     Active Substance: FOLIC ACID
     Indication: Product used for unknown indication
  25. BIOCORNEUM [Concomitant]
     Active Substance: AVOBENZONE\HOMOSALATE\MERADIMATE\OCTISALATE\OCTOCRYLENE
     Indication: Product used for unknown indication
  26. DELSYM COUGH+ CHEST CONGESTION DM [Concomitant]
     Indication: Product used for unknown indication
     Dosage: PRN
  27. TAMSULOSIN [Concomitant]
     Active Substance: TAMSULOSIN
     Indication: Product used for unknown indication
     Dosage: PRN
  28. ACETAMINOPHEN [Concomitant]
     Active Substance: ACETAMINOPHEN
     Indication: Product used for unknown indication
  29. APIXABAN [Concomitant]
     Active Substance: APIXABAN
     Indication: Product used for unknown indication
  30. TADALAFIL [Concomitant]
     Active Substance: TADALAFIL
     Indication: Product used for unknown indication

REACTIONS (1)
  - Atrial fibrillation [Unknown]
